FAERS Safety Report 5667537-9 (Version None)
Quarter: 2008Q1

REPORT INFORMATION
  Report Type: 
  Country: None (occurrence: None)
  Receive Date: 20080315
  Receipt Date: 20080128
  Transmission Date: 20080703
  Serious: No
  Sender: FDA-Public Use
  Company Number: US-ABBOTT-08P-163-0435365-00

PATIENT
  Sex: Female
  Weight: 113.6 kg

DRUGS (3)
  1. HUMIRA [Suspect]
     Indication: CROHN'S DISEASE
     Route: 058
     Dates: start: 20071214
  2. PREDNISONE [Concomitant]
     Indication: CROHN'S DISEASE
     Route: 048
     Dates: start: 20071001
  3. WARFARIN SODIUM [Concomitant]
     Indication: COAGULOPATHY
     Route: 048

REACTIONS (5)
  - ARTHRALGIA [None]
  - COUGH [None]
  - HEADACHE [None]
  - INFLUENZA [None]
  - PYREXIA [None]
